FAERS Safety Report 8261872-6 (Version None)
Quarter: 2012Q2

REPORT INFORMATION
  Report Type: 
  Country: None (occurrence: None)
  Receive Date: 20120405
  Receipt Date: 20120404
  Transmission Date: 20120825
  Serious: Yes (Life-Threatening, Hospitalization, Disabling, Other)
  Sender: FDA-Public Use
  Company Number: JP-B.I. PHARMACEUTICALS,INC./RIDGEFIELD-2012-BP-04464NB

PATIENT
  Sex: Female
  Weight: 49 kg

DRUGS (7)
  1. CANDESARTAN CILEXETIL [Concomitant]
     Indication: HYPERTENSION
     Dosage: 2 MG
     Route: 048
     Dates: start: 20120303, end: 20120307
  2. FUROSEMIDE [Concomitant]
     Indication: CARDIAC FAILURE CHRONIC
  3. PRADAXA [Suspect]
     Indication: ATRIAL FIBRILLATION
     Dosage: 220 MG
     Route: 048
     Dates: start: 20120303, end: 20120307
  4. FUROSEMIDE [Concomitant]
     Indication: AORTIC VALVE INCOMPETENCE
  5. FUROSEMIDE [Concomitant]
     Indication: HYPERTENSION
  6. FUROSEMIDE [Concomitant]
     Indication: RENAL FAILURE CHRONIC
     Dosage: 20 MG
     Route: 048
     Dates: end: 20120307
  7. BIO-THREE [Concomitant]
     Route: 048
     Dates: start: 20120303, end: 20120307

REACTIONS (8)
  - ANAEMIA [None]
  - HAEMATOMA [None]
  - GASTROINTESTINAL HAEMORRHAGE [None]
  - HAEMORRHAGE SUBCUTANEOUS [None]
  - INFUSION SITE NECROSIS [None]
  - OCCULT BLOOD [None]
  - URINARY TRACT INFECTION [None]
  - INTERNATIONAL NORMALISED RATIO INCREASED [None]
